FAERS Safety Report 8957919 (Version 1)
Quarter: 2012Q4

REPORT INFORMATION
  Report Type: 
  Country: US (occurrence: US)
  Receive Date: 20121211
  Receipt Date: 20121211
  Transmission Date: 20130627
  Serious: Yes (Hospitalization)
  Sender: FDA-Public Use
  Company Number: US-JNJFOC-20121200247

PATIENT
  Sex: Female
  Weight: 49.9 kg

DRUGS (6)
  1. INVEGA SUSTENNA [Suspect]
     Indication: BIPOLAR DISORDER
     Route: 030
  2. INVEGA SUSTENNA [Suspect]
     Indication: BIPOLAR DISORDER
     Route: 030
  3. RISPERDAL [Suspect]
     Indication: BIPOLAR DISORDER
     Route: 048
  4. SYNTHROID [Concomitant]
     Route: 048
  5. LORAZEPAM [Concomitant]
     Route: 048
  6. LITHIUM [Concomitant]
     Route: 048

REACTIONS (6)
  - Hospitalisation [Recovered/Resolved]
  - Musculoskeletal disorder [Unknown]
  - Asthenia [Unknown]
  - Restlessness [Unknown]
  - Tremor [Unknown]
  - Adverse event [Unknown]
